FAERS Safety Report 17969659 (Version 3)
Quarter: 2021Q2

REPORT INFORMATION
  Report Type: Spontaneous
  Country: US (occurrence: US)
  Receive Date: 20200701
  Receipt Date: 20210413
  Transmission Date: 20210717
  Serious: Yes (Hospitalization, Other)
  Sender: FDA-Public Use
  Company Number: US-PFIZER INC-2020251226

PATIENT
  Age: 5 Decade
  Sex: Female
  Weight: 47.63 kg

DRUGS (8)
  1. VENTOLIN [Concomitant]
     Active Substance: ALBUTEROL SULFATE
     Dosage: UNK
  2. DILANTIN [Suspect]
     Active Substance: PHENYTOIN
     Indication: SEIZURE
     Dosage: 100 MG, 4X/DAY
     Dates: start: 2010
  3. PROMETHAZINE [Concomitant]
     Active Substance: PROMETHAZINE HYDROCHLORIDE
     Dosage: UNK
  4. BREO ELLIPTA [Concomitant]
     Active Substance: FLUTICASONE FUROATE\VILANTEROL TRIFENATATE
     Dosage: UNK
  5. ALPRAZOLAM. [Concomitant]
     Active Substance: ALPRAZOLAM
     Indication: MENTAL DISORDER
     Dosage: 2 MG (HALF A PILL EVERY 5 HOURS)
  6. DILANTIN [Suspect]
     Active Substance: PHENYTOIN
     Dosage: 100 MG, 3X/DAY
     Dates: start: 2010
  7. ZOLPIDEM [Concomitant]
     Active Substance: ZOLPIDEM TARTRATE
     Indication: SLEEP DISORDER
     Dosage: 10 MG
  8. KEPPRA [Concomitant]
     Active Substance: LEVETIRACETAM
     Indication: SEIZURE
     Dosage: 500 MG, 2X/DAY

REACTIONS (13)
  - Drug level decreased [Unknown]
  - Visual impairment [Unknown]
  - Expired product administered [Unknown]
  - Swelling [Unknown]
  - Tooth disorder [Unknown]
  - Hyperchlorhydria [Unknown]
  - Haematochezia [Recovered/Resolved]
  - Dementia Alzheimer^s type [Not Recovered/Not Resolved]
  - Oesophageal injury [Unknown]
  - Polyp [Unknown]
  - Stress [Not Recovered/Not Resolved]
  - Anxiety [Unknown]
  - Weight fluctuation [Unknown]

NARRATIVE: CASE EVENT DATE: 2019
